FAERS Safety Report 16206645 (Version 1)
Quarter: 2019Q2

REPORT INFORMATION
  Report Type: Spontaneous
  Country: US (occurrence: US)
  Receive Date: 20190312
  Receipt Date: 20190312
  Transmission Date: 20190711
  Serious: Yes (Other)
  Sender: FDA-Public Use
  Company Number: None

PATIENT
  Age: 79 Year
  Sex: Male
  Weight: 90.72 kg

DRUGS (5)
  1. VIRTUSSIN A/C [Suspect]
     Active Substance: CODEINE PHOSPHATE\GUAIFENESIN
     Indication: COUGH
     Route: 048
     Dates: start: 20190219, end: 20190220
  2. LOSARTAN-HYDROCHLOROTHIAZIDE [Concomitant]
     Active Substance: HYDROCHLOROTHIAZIDE\LOSARTAN
  3. PRAVASTATIN. [Concomitant]
     Active Substance: PRAVASTATIN
  4. WARFARIN [Concomitant]
     Active Substance: WARFARIN
  5. DILTIAZEM. [Concomitant]
     Active Substance: DILTIAZEM

REACTIONS (4)
  - Sleep disorder [None]
  - Fall [None]
  - Dysstasia [None]
  - Asthenia [None]

NARRATIVE: CASE EVENT DATE: 20190220
